FAERS Safety Report 19310705 (Version 2)
Quarter: 2021Q2

REPORT INFORMATION
  Report Type: Other
  Country: JP (occurrence: JP)
  Receive Date: 20210526
  Receipt Date: 20210529
  Transmission Date: 20210717
  Serious: Yes (Other)
  Sender: FDA-Public Use
  Company Number: JP-ROCHE-2835826

PATIENT
  Age: 25 Week
  Weight: .64 kg

DRUGS (1)
  1. AVASTIN [Suspect]
     Active Substance: BEVACIZUMAB
     Indication: RETINOPATHY OF PREMATURITY
     Route: 050

REACTIONS (4)
  - Off label use [Unknown]
  - Endophthalmitis [Recovering/Resolving]
  - Atrophy of globe [Unknown]
  - Apnoeic attack [Unknown]
